FAERS Safety Report 10152574 (Version 1)
Quarter: 2014Q2

REPORT INFORMATION
  Report Type: Spontaneous
  Country: US (occurrence: None)
  Receive Date: 20140502
  Receipt Date: 20140502
  Transmission Date: 20141212
  Serious: Yes (Other)
  Sender: FDA-Public Use
  Company Number: None

PATIENT
  Age: 22 Year
  Sex: Male

DRUGS (1)
  1. RIBAPAK [Suspect]
     Indication: CHRONIC HEPATITIS C
     Dosage: 600MG, TWICE A DAY, ORALLY?
     Route: 048
     Dates: start: 20140324, end: 20140430

REACTIONS (3)
  - Pregnancy of partner [None]
  - Unintended pregnancy [None]
  - Exposure via father [None]
